FAERS Safety Report 7221406-1 (Version None)
Quarter: 2010Q4

REPORT INFORMATION
  Report Type: 
  Country: None (occurrence: None)
  Receive Date: 20101227
  Receipt Date: 20101213
  Transmission Date: 20110411
  Serious: Yes (Hospitalization)
  Sender: FDA-Public Use
  Company Number: 2010027126

PATIENT
  Sex: Female

DRUGS (10)
  1. PRIVIGEN [Suspect]
     Indication: IMMUNODEFICIENCY COMMON VARIABLE
     Dosage: 45 G 1X/2 WEEKS, RATE OF INFUSION 60, 100, 200 CC; RATES INCREASED EVERY 15 MINUTES (CONCENTRATION 1
     Route: 042
     Dates: start: 20101124, end: 20101124
  2. PRIVIGEN [Suspect]
     Indication: IMMUNODEFICIENCY COMMON VARIABLE
     Dosage: 45 G 1X/2 WEEKS, RATE OF INFUSION 60, 100, 200 CC; RATES INCREASED EVERY 15 MINUTES (CONCENTRATION 1
     Route: 042
     Dates: start: 20101124, end: 20101124
  3. TRAZODONE (TRAZODONE) [Concomitant]
  4. ADDERALL XR (OBETROL /01345401/) [Concomitant]
  5. ADVAIR DISKUS 100/50 [Concomitant]
  6. PAXIL [Concomitant]
  7. SINGULAIR [Concomitant]
  8. ERYTHROMYCIN [Concomitant]
  9. ZYRTEC [Concomitant]
  10. XANAX [Concomitant]

REACTIONS (2)
  - DEEP VEIN THROMBOSIS [None]
  - MEDICAL DEVICE COMPLICATION [None]
